FAERS Safety Report 8339799-0 (Version None)
Quarter: 2012Q2

REPORT INFORMATION
  Report Type: 
  Country: None (occurrence: None)
  Receive Date: 20120507
  Receipt Date: 20120426
  Transmission Date: 20120825
  Serious: Yes (Hospitalization)
  Sender: FDA-Public Use
  Company Number: JP-CELGENEUS-087-50794-12050081

PATIENT
  Age: 66 Year
  Sex: Male
  Weight: 56 kg

DRUGS (16)
  1. VIDAZA [Suspect]
     Dosage: 75 MILLIGRAM/SQ. METER
     Route: 058
     Dates: start: 20111212, end: 20111220
  2. VIDAZA [Suspect]
     Dosage: 75 MILLIGRAM/SQ. METER
     Route: 058
     Dates: start: 20120123, end: 20120127
  3. RAMELTEON [Concomitant]
     Route: 065
     Dates: start: 20110917, end: 20110921
  4. RAMELTEON [Concomitant]
     Route: 065
     Dates: start: 20111212, end: 20111220
  5. VIDAZA [Suspect]
     Dosage: 75 MILLIGRAM/SQ. METER
     Route: 058
     Dates: start: 20111018, end: 20111026
  6. MOTILIUM [Concomitant]
     Route: 065
     Dates: start: 20110916, end: 20110923
  7. RAMELTEON [Concomitant]
     Route: 065
     Dates: start: 20120123, end: 20120127
  8. VIDAZA [Suspect]
     Dosage: 75 MILLIGRAM/SQ. METER
     Route: 058
     Dates: start: 20111114, end: 20111122
  9. VIDAZA [Suspect]
     Dosage: 75 MILLIGRAM/SQ. METER
     Route: 058
     Dates: start: 20120312, end: 20120316
  10. RAMELTEON [Concomitant]
     Route: 065
     Dates: start: 20120312, end: 20120316
  11. RAMELTEON [Concomitant]
     Route: 065
     Dates: start: 20111024, end: 20111025
  12. RAMELTEON [Concomitant]
     Route: 065
     Dates: start: 20111114, end: 20111122
  13. LEVOFLOXACIN [Concomitant]
     Route: 065
     Dates: start: 20120317, end: 20120323
  14. RAMELTEON [Concomitant]
     Route: 065
     Dates: start: 20111019, end: 20111021
  15. VIDAZA [Suspect]
     Dosage: 75 MILLIGRAM/SQ. METER
     Route: 058
     Dates: start: 20110916, end: 20110922
  16. MEROPENEM [Concomitant]
     Route: 065
     Dates: start: 20120220, end: 20120225

REACTIONS (3)
  - PYREXIA [None]
  - EOSINOPHIL COUNT INCREASED [None]
  - C-REACTIVE PROTEIN INCREASED [None]
